FAERS Safety Report 11197486 (Version 1)
Quarter: 2015Q2

REPORT INFORMATION
  Report Type: Spontaneous
  Country: US (occurrence: US)
  Receive Date: 20150617
  Receipt Date: 20150617
  Transmission Date: 20150821
  Serious: No
  Sender: FDA-Public Use
  Company Number: US-ASTRAZENECA-2013SE32051

PATIENT
  Age: 77 Year
  Sex: Male
  Weight: 90.7 kg

DRUGS (14)
  1. CARVEDILOL. [Concomitant]
     Active Substance: CARVEDILOL
     Dosage: 6.25 MG, BID
  2. LOSARTAN POTASSIUM + HCTZ [Concomitant]
     Active Substance: HYDROCHLOROTHIAZIDE\LOSARTAN
     Dosage: EYE DROPS
     Route: 047
  3. ALENDRONATE [Concomitant]
     Active Substance: ALENDRONATE SODIUM
     Dosage: 200 MG, QD
  4. GLIMEPRIDE [Concomitant]
     Active Substance: GLIMEPIRIDE
     Dosage: 1 MG, QD
  5. GLYBURIDE. [Concomitant]
     Active Substance: GLYBURIDE
  6. CALCIUM [Concomitant]
     Active Substance: CALCIUM
     Dosage: PILL
  7. LUMIGAN [Concomitant]
     Active Substance: BIMATOPROST
     Dosage: .3 %, UNK
  8. METFORMIN [Concomitant]
     Active Substance: METFORMIN HYDROCHLORIDE
     Dosage: 100 MG, BID
  9. ASPIRIN. [Concomitant]
     Active Substance: ASPIRIN
     Dosage: 1DF:SMALL DOSE
  10. ACETAZOLAMIDE. [Concomitant]
     Active Substance: ACETAZOLAMIDE
     Dosage: 250 MG, UNK
  11. BYDUREON [Suspect]
     Active Substance: EXENATIDE
     Indication: DIABETES MELLITUS
     Route: 058
  12. ACTOS [Concomitant]
     Active Substance: PIOGLITAZONE HYDROCHLORIDE
     Dosage: 45 MG, QD
  13. BRIMONIDINE [Concomitant]
     Active Substance: BRIMONIDINE\BRIMONIDINE TARTRATE
     Dosage: .2 %, UNK
  14. SIMVASTATIN. [Concomitant]
     Active Substance: SIMVASTATIN
     Dosage: 40 MG, QD

REACTIONS (5)
  - Injection site mass [Unknown]
  - Injection site haemorrhage [Recovered/Resolved]
  - Weight increased [Unknown]
  - Body height decreased [Unknown]
  - Injection site nodule [Unknown]
